FAERS Safety Report 21242184 (Version 6)
Quarter: 2023Q2

REPORT INFORMATION
  Report Type: Spontaneous
  Country: JP (occurrence: JP)
  Receive Date: 20220823
  Receipt Date: 20230605
  Transmission Date: 20230721
  Serious: Yes (Hospitalization, Other)
  Sender: FDA-Public Use
  Company Number: JP-ASTELLAS-2022JP011712

PATIENT
  Age: 72 Year
  Sex: Female

DRUGS (14)
  1. XOSPATA [Suspect]
     Active Substance: GILTERITINIB
     Indication: Acute myeloid leukaemia recurrent
     Route: 048
     Dates: start: 20220624, end: 2022
  2. XOSPATA [Suspect]
     Active Substance: GILTERITINIB
     Indication: Acute myeloid leukaemia refractory
     Route: 048
     Dates: start: 2022, end: 2022
  3. XOSPATA [Suspect]
     Active Substance: GILTERITINIB
     Route: 048
     Dates: start: 2022
  4. XOSPATA [Suspect]
     Active Substance: GILTERITINIB
     Route: 048
  5. AMLODIPINE [Concomitant]
     Active Substance: AMLODIPINE BESYLATE
     Indication: Product used for unknown indication
     Route: 065
  6. PREDNISOLONE [Concomitant]
     Active Substance: PREDNISOLONE
     Indication: Product used for unknown indication
     Route: 065
     Dates: start: 202206, end: 202206
  7. PREDNISOLONE [Concomitant]
     Active Substance: PREDNISOLONE
     Route: 065
     Dates: start: 202206, end: 202206
  8. PREDNISOLONE [Concomitant]
     Active Substance: PREDNISOLONE
     Route: 065
     Dates: start: 202206, end: 2022
  9. PREDNISOLONE [Concomitant]
     Active Substance: PREDNISOLONE
     Route: 065
     Dates: start: 2022, end: 202207
  10. PREDNISOLONE [Concomitant]
     Active Substance: PREDNISOLONE
     Dosage: UNK UNK, UNKNOWN FREQ.
     Dates: start: 202207, end: 202207
  11. PREDNISOLONE [Concomitant]
     Active Substance: PREDNISOLONE
     Dosage: UNK UNK, UNKNOWN FREQ.
     Dates: start: 202207, end: 202207
  12. PREDNISOLONE [Concomitant]
     Active Substance: PREDNISOLONE
     Dosage: UNK UNK, UNKNOWN FREQ.
     Dates: start: 202207, end: 202207
  13. PREDNISOLONE [Concomitant]
     Active Substance: PREDNISOLONE
     Dosage: UNK UNK, UNKNOWN FREQ.
     Dates: start: 202208, end: 202208
  14. PREDNISOLONE [Concomitant]
     Active Substance: PREDNISOLONE
     Dosage: UNK UNK, UNKNOWN FREQ.
     Dates: start: 202208

REACTIONS (2)
  - Cellulitis [Recovered/Resolved]
  - Cough [Recovered/Resolved]

NARRATIVE: CASE EVENT DATE: 20220725
